FAERS Safety Report 23328852 (Version 1)
Quarter: 2023Q4

REPORT INFORMATION
  Report Type: Spontaneous
  Country: CN (occurrence: None)
  Receive Date: 20231222
  Receipt Date: 20231222
  Transmission Date: 20240110
  Serious: Yes (Hospitalization)
  Sender: FDA-Public Use
  Company Number: CN-ROCHE-3474626

PATIENT
  Age: 53 Year
  Sex: Male

DRUGS (3)
  1. AVASTIN [Suspect]
     Active Substance: BEVACIZUMAB
     Indication: Surgery
     Route: 041
     Dates: start: 20230816, end: 20230816
  2. CARBOPLATIN [Suspect]
     Active Substance: CARBOPLATIN
     Indication: Surgery
     Route: 041
     Dates: start: 20230816, end: 20230816
  3. PEMETREXED DISODIUM [Suspect]
     Active Substance: PEMETREXED DISODIUM
     Indication: Surgery
     Route: 041
     Dates: start: 20230816, end: 20230816

REACTIONS (1)
  - Hepatic function abnormal [Recovering/Resolving]
